FAERS Safety Report 4618310-1 (Version None)
Quarter: 2005Q1

REPORT INFORMATION
  Report Type: 
  Country: None (occurrence: None)
  Receive Date: 20050323
  Receipt Date: 20050308
  Transmission Date: 20050727
  Serious: Yes (Other)
  Sender: FDA-Public Use
  Company Number: EWC050343070

PATIENT
  Age: 66 Year
  Sex: Female

DRUGS (2)
  1. ZYPREXA [Suspect]
     Indication: DEPRESSION
     Dosage: 5 MG
     Dates: start: 20030301, end: 20050201
  2. FLUOXETINE [Suspect]
     Dosage: 20 MG

REACTIONS (3)
  - BLOOD CHOLESTEROL INCREASED [None]
  - METABOLIC SYNDROME [None]
  - WEIGHT INCREASED [None]
